FAERS Safety Report 10005676 (Version 1)
Quarter: 2014Q1

REPORT INFORMATION
  Report Type: Spontaneous
  Country: US (occurrence: US)
  Receive Date: 20140313
  Receipt Date: 20140313
  Transmission Date: 20141002
  Serious: No
  Sender: FDA-Public Use
  Company Number: US-BIOGENIDEC-2014BI021251

PATIENT
  Age: 58 Year
  Sex: Male
  Weight: 88 kg

DRUGS (30)
  1. TECFIDERA [Suspect]
     Indication: RELAPSING-REMITTING MULTIPLE SCLEROSIS
     Dates: start: 20130710
  2. TECFIDERA [Suspect]
     Indication: RELAPSING-REMITTING MULTIPLE SCLEROSIS
     Dates: end: 20140225
  3. ACETAMINOPHEN [Concomitant]
  4. ALPRAZOLAM [Concomitant]
  5. AMITRIPTYLINE [Concomitant]
     Route: 048
     Dates: start: 20130708
  6. AMITRIPTYLINE [Concomitant]
     Route: 048
     Dates: start: 20130708
  7. AMPYRA [Concomitant]
     Route: 048
     Dates: start: 20130529
  8. ASPIRIN [Concomitant]
     Route: 048
  9. BACLOFEN [Concomitant]
     Indication: PAIN
     Route: 048
     Dates: start: 20111018
  10. BACLOFEN [Concomitant]
     Indication: PAIN
     Route: 048
     Dates: start: 20111018
  11. BYSTOLIC [Concomitant]
     Route: 048
  12. CENTRUM ULTRA MENS [Concomitant]
     Route: 048
  13. DRAMAMINE [Concomitant]
  14. HYDROCHLOROTHIAZIDE [Concomitant]
     Route: 048
  15. HYDROCODONE-ACETAMINOPHEN [Concomitant]
     Indication: PAIN
     Route: 048
     Dates: start: 20140212
  16. LEVITRA [Concomitant]
     Route: 048
  17. LIDODERM [Concomitant]
     Dates: start: 20100901
  18. POTASSIUM GLUCONATE [Concomitant]
     Route: 048
  19. PREDNISONE [Concomitant]
     Dates: start: 20140220
  20. PREDNISONE [Concomitant]
  21. PREDNISONE [Concomitant]
  22. PROVIGIL [Concomitant]
     Route: 048
     Dates: start: 20130402
  23. RIZATRIPTAN [Concomitant]
     Indication: HEADACHE
     Route: 048
     Dates: start: 20110308
  24. SUMATRIPTAN SUCCINATE [Concomitant]
     Indication: HEADACHE
     Route: 048
     Dates: start: 20120116
  25. TEMAZEPAM [Concomitant]
     Route: 048
     Dates: start: 20131203
  26. UNISOM [Concomitant]
  27. UROXATRAL [Concomitant]
     Route: 048
  28. ZANAFLEX [Concomitant]
     Dates: start: 20130710
  29. ZOFRAN [Concomitant]
     Indication: NAUSEA
     Route: 048
     Dates: start: 20130819
  30. ZOLPIDEM [Concomitant]
     Route: 048
     Dates: start: 20131107

REACTIONS (9)
  - Muscle spasms [Unknown]
  - Weight decreased [Unknown]
  - Influenza [Unknown]
  - Gait disturbance [Unknown]
  - Cerebellar ataxia [Unknown]
  - Hypersensitivity [Unknown]
  - Headache [Unknown]
  - Insomnia [Unknown]
  - Overdose [Unknown]
